FAERS Safety Report 4541883-4 (Version None)
Quarter: 2004Q4

REPORT INFORMATION
  Report Type: 
  Country: None (occurrence: None)
  Receive Date: 20041227
  Receipt Date: 20041215
  Transmission Date: 20050328
  Serious: Yes (Hospitalization, Other)
  Sender: FDA-Public Use
  Company Number: 2004193459JP

PATIENT
  Age: 39 Year
  Sex: Male
  Weight: 101 kg

DRUGS (1)
  1. GENOTROPIN [Suspect]
     Indication: HYPOPITUITARISM
     Dosage: 0.2 MG (0.2 MG, QD), SUBCUTANEOUS
     Route: 058
     Dates: start: 20030730, end: 20040113

REACTIONS (3)
  - DEAFNESS UNILATERAL [None]
  - INTERVERTEBRAL DISC PROTRUSION [None]
  - SUDDEN HEARING LOSS [None]
